FAERS Safety Report 9094117 (Version 2)
Quarter: 2013Q1

REPORT INFORMATION
  Report Type: Spontaneous
  Country: US (occurrence: None)
  Receive Date: 20130122
  Receipt Date: 20130129
  Transmission Date: 20140127
  Serious: Yes (Other)
  Sender: FDA-Public Use
  Company Number: 2013SA001493

PATIENT
  Age: 65 Year
  Sex: Female
  Weight: 95.2 kg

DRUGS (1)
  1. ICY HOT CREAM [Suspect]
     Indication: ANALGESIC THERAPY
     Dates: start: 20120715, end: 20120716

REACTIONS (2)
  - Burns third degree [None]
  - Local swelling [None]
